FAERS Safety Report 12831437 (Version 2)
Quarter: 2017Q3

REPORT INFORMATION
  Report Type: Report from Study
  Country: None (occurrence: US)
  Receive Date: 20161008
  Receipt Date: 20170913
  Transmission Date: 20171127
  Serious: Yes (Other)
  Sender: FDA-Public Use
  Company Number: US-ABBVIE-16K-163-1746032-00

PATIENT
  Age: 54 Year
  Sex: Male

DRUGS (3)
  1. HUMIRA [Suspect]
     Active Substance: ADALIMUMAB
     Dosage: DOSAGE DECREASED
     Route: 058
     Dates: start: 201512
  2. HUMIRA [Suspect]
     Active Substance: ADALIMUMAB
     Indication: RHEUMATOID ARTHRITIS
     Route: 058
  3. HUMIRA [Suspect]
     Active Substance: ADALIMUMAB
     Route: 058

REACTIONS (10)
  - Inappropriate schedule of drug administration [Unknown]
  - Wrist fracture [Recovered/Resolved]
  - Back pain [Unknown]
  - Balance disorder [Recovered/Resolved]
  - Cyst [Recovering/Resolving]
  - Exostosis [Unknown]
  - Visual impairment [Unknown]
  - Rheumatoid arthritis [Not Recovered/Not Resolved]
  - Spinal fracture [Unknown]
  - Fibromyalgia [Not Recovered/Not Resolved]

NARRATIVE: CASE EVENT DATE: 201512
